FAERS Safety Report 4707380-8 (Version None)
Quarter: 2005Q3

REPORT INFORMATION
  Report Type: 
  Country: None (occurrence: None)
  Receive Date: 20050701
  Receipt Date: 20050701
  Transmission Date: 20060218
  Serious: No
  Sender: FDA-Public Use
  Company Number: None

PATIENT
  Age: 53 Year
  Sex: Female
  Weight: 75.7507 kg

DRUGS (1)
  1. DAPTOMYCIN 300 MG [Suspect]
     Indication: OSTEOMYELITIS
     Dosage: 300 MG IV Q 24 H
     Route: 042
     Dates: start: 20050614, end: 20050628

REACTIONS (3)
  - BLOOD CREATINE PHOSPHOKINASE INCREASED [None]
  - MALAISE [None]
  - MYALGIA [None]
